FAERS Safety Report 18605813 (Version 1)
Quarter: 2020Q4

REPORT INFORMATION
  Report Type: Spontaneous
  Country: ML (occurrence: ML)
  Receive Date: 20201211
  Receipt Date: 20201211
  Transmission Date: 20210114
  Serious: Yes (Death, Hospitalization, Other)
  Sender: FDA-Public Use
  Company Number: NVSC2020ML330063

PATIENT
  Age: 62 Year
  Sex: Male
  Weight: 61 kg

DRUGS (3)
  1. GLIVEC [Suspect]
     Active Substance: IMATINIB MESYLATE
     Indication: CHRONIC MYELOID LEUKAEMIA
     Dosage: 100 MG, QID
     Route: 065
     Dates: start: 20180202, end: 20180225
  2. INSULIN [Concomitant]
     Active Substance: INSULIN NOS
     Indication: DIABETES MELLITUS
     Dosage: UNK
     Route: 065
     Dates: start: 2010
  3. PERINDOPRIL [Concomitant]
     Active Substance: PERINDOPRIL
     Indication: HYPERTENSION
     Dosage: UNK
     Route: 065
     Dates: start: 2010

REACTIONS (8)
  - Unresponsive to stimuli [Unknown]
  - Musculoskeletal stiffness [Fatal]
  - Pyrexia [Fatal]
  - Hyperglycaemia [Fatal]
  - General physical health deterioration [Fatal]
  - Sputum discoloured [Fatal]
  - Confusional state [Fatal]
  - Cough [Unknown]

NARRATIVE: CASE EVENT DATE: 20180225
